FAERS Safety Report 8374763-7 (Version None)
Quarter: 2012Q2

REPORT INFORMATION
  Report Type: 
  Country: None (occurrence: None)
  Receive Date: 20120521
  Receipt Date: 20120508
  Transmission Date: 20120825
  Serious: Yes (Other)
  Sender: FDA-Public Use
  Company Number: US-JNJFOC-20120508365

PATIENT
  Sex: Male
  Weight: 74.84 kg

DRUGS (2)
  1. LEVAQUIN [Suspect]
     Indication: CYSTITIS
     Route: 048
     Dates: start: 20110101, end: 20110101
  2. LEVAQUIN [Suspect]
     Route: 048
     Dates: start: 20111001, end: 20111001

REACTIONS (3)
  - INCONTINENCE [None]
  - NEUROPATHY PERIPHERAL [None]
  - CYSTITIS [None]
